FAERS Safety Report 16670230 (Version 1)
Quarter: 2019Q3

REPORT INFORMATION
  Report Type: Spontaneous
  Country: CA (occurrence: CA)
  Receive Date: 20190805
  Receipt Date: 20190805
  Transmission Date: 20191004
  Serious: Yes (Life-Threatening)
  Sender: FDA-Public Use
  Company Number: CA-PFIZER INC-2019331872

PATIENT
  Age: 65 Year
  Sex: Female
  Weight: 56.69 kg

DRUGS (1)
  1. ESTRING [Suspect]
     Active Substance: ESTRADIOL
     Indication: VULVOVAGINAL BURNING SENSATION
     Dosage: 1 DF, EVERY 3 MONTHS
     Route: 067

REACTIONS (2)
  - Deep vein thrombosis [Unknown]
  - Thrombophlebitis superficial [Unknown]
